FAERS Safety Report 11288814 (Version 1)
Quarter: 2015Q3

REPORT INFORMATION
  Report Type: Spontaneous
  Country: CH (occurrence: CH)
  Receive Date: 20150721
  Receipt Date: 20150721
  Transmission Date: 20151125
  Serious: Yes (Other)
  Sender: FDA-Public Use
  Company Number: CH-ASTRAZENECA-2015SE68611

PATIENT
  Sex: Female

DRUGS (6)
  1. LAMOTRIGIN [Concomitant]
     Active Substance: LAMOTRIGINE
  2. ATENOLOL. [Concomitant]
     Active Substance: ATENOLOL
  3. MIRANOVA [Concomitant]
     Active Substance: ETHINYL ESTRADIOL\LEVONORGESTREL
     Dosage: 3 3 21 PCS.
  4. FLORINEF ACETATE [Concomitant]
     Active Substance: FLUDROCORTISONE ACETATE
  5. SEROQUEL [Suspect]
     Active Substance: QUETIAPINE FUMARATE
     Route: 048
  6. CYMBALTA [Suspect]
     Active Substance: DULOXETINE HYDROCHLORIDE
     Dosage: 30 MG, ALTERNATING 1 OR 2 TABLETS/DAY
     Route: 065

REACTIONS (1)
  - Impaired gastric emptying [Unknown]

NARRATIVE: CASE EVENT DATE: 20150603
